FAERS Safety Report 9613288 (Version 5)
Quarter: 2019Q2

REPORT INFORMATION
  Report Type: Spontaneous
  Country: CA (occurrence: CA)
  Receive Date: 20131010
  Receipt Date: 20190517
  Transmission Date: 20190711
  Serious: Yes (Hospitalization, Other)
  Sender: FDA-Public Use
  Company Number: CA-AMGEN-CANSP2013071167

PATIENT
  Age: 79 Year
  Sex: Female

DRUGS (3)
  1. LIDOCAINE HYDROCHLORIDE W/METHYLPREDNISOLONE [Suspect]
     Active Substance: LIDOCAINE HYDROCHLORIDE\METHYLPREDNISOLONE ACETATE
     Indication: OSTEOARTHRITIS
     Dosage: UNK
     Route: 014
  2. ENBREL [Suspect]
     Active Substance: ETANERCEPT
     Indication: RHEUMATOID ARTHRITIS
     Dosage: UNK
     Route: 065
  3. DEPO-MEDROL + LIDOCAINE [Suspect]
     Active Substance: LIDOCAINE HYDROCHLORIDE\METHYLPREDNISOLONE ACETATE
     Indication: OSTEOARTHRITIS
     Dosage: UNK UNK, AS NECESSARY
     Route: 014
     Dates: end: 20130430

REACTIONS (6)
  - Urticaria [Recovered/Resolved]
  - Hospitalisation [Not Recovered/Not Resolved]
  - Electrolyte imbalance [Recovered/Resolved]
  - Erythema [Recovered/Resolved]
  - Drug hypersensitivity [Recovered/Resolved]
  - Reaction to preservatives [Recovered/Resolved]
